FAERS Safety Report 10023125 (Version 2)
Quarter: 2014Q2

REPORT INFORMATION
  Report Type: Spontaneous
  Country: AU (occurrence: AU)
  Receive Date: 20140320
  Receipt Date: 20140604
  Transmission Date: 20141212
  Serious: Yes (Hospitalization, Other)
  Sender: FDA-Public Use
  Company Number: AU-009507513-1403AUS008125

PATIENT
  Age: 73 Year
  Sex: Female

DRUGS (11)
  1. ALENDRONATE SODIUM [Suspect]
     Indication: RADIUS FRACTURE
     Dosage: 70 MG WEEKLY
     Route: 048
  2. CALCIUM (UNSPECIFIED) [Suspect]
     Indication: RADIUS FRACTURE
  3. VITAMIN D (UNSPECIFIED) [Suspect]
     Indication: RADIUS FRACTURE
  4. FLECAINIDE ACETATE [Concomitant]
  5. CANDESARTAN CILEXETIL [Concomitant]
     Route: 048
  6. DOTHIEPIN HYDROCHLORIDE [Concomitant]
  7. LERCANIDIPINE [Concomitant]
  8. ESOMEPRAZOLE MAGNESIUM [Concomitant]
     Route: 048
  9. FOLIC ACID [Concomitant]
  10. FUROSEMIDE [Concomitant]
     Route: 048
  11. WARFARIN SODIUM [Concomitant]
     Route: 048

REACTIONS (2)
  - Hip fracture [Unknown]
  - Intramedullary rod insertion [Unknown]
